FAERS Safety Report 6466401-5 (Version None)
Quarter: 2009Q4

REPORT INFORMATION
  Report Type: 
  Country: None (occurrence: None)
  Receive Date: 20091202
  Receipt Date: 20091123
  Transmission Date: 20100525
  Serious: Yes (Other)
  Sender: FDA-Public Use
  Company Number: CA-BAXTER-2009BH014602

PATIENT
  Age: 54 Year
  Sex: Female

DRUGS (10)
  1. GAMMAGARD LIQUID [Suspect]
     Indication: BONE MARROW TRANSPLANT
     Route: 065
     Dates: start: 20090915, end: 20090915
  2. GAMMAGARD LIQUID [Suspect]
     Route: 065
     Dates: start: 20090915, end: 20090915
  3. GAMMAGARD LIQUID [Suspect]
     Route: 065
     Dates: start: 20090702, end: 20090702
  4. GAMMAGARD LIQUID [Suspect]
     Route: 065
     Dates: start: 20090702, end: 20090702
  5. GAMMAGARD LIQUID [Suspect]
     Route: 065
     Dates: start: 20090604, end: 20090604
  6. GAMMAGARD LIQUID [Suspect]
     Route: 065
     Dates: start: 20090604, end: 20090604
  7. GAMMAGARD LIQUID [Suspect]
     Route: 065
     Dates: start: 20090507, end: 20090507
  8. GAMMAGARD LIQUID [Suspect]
     Route: 065
     Dates: start: 20090507, end: 20090507
  9. GAMMAGARD LIQUID [Suspect]
     Route: 065
     Dates: start: 20090401, end: 20090401
  10. GAMMAGARD LIQUID [Suspect]
     Route: 065
     Dates: start: 20090401, end: 20090401

REACTIONS (1)
  - HAEMOLYSIS [None]
